FAERS Safety Report 9840616 (Version 1)
Quarter: 2013Q4

REPORT INFORMATION
  Report Type: Spontaneous
  Country: US (occurrence: None)
  Receive Date: 20131211
  Receipt Date: 20131211
  Transmission Date: 20140711
  Serious: Yes (Other)
  Sender: FDA-Public Use
  Company Number: SPV1-2012-00990

PATIENT
  Age: 9 Year
  Sex: Female

DRUGS (1)
  1. VYVANSE [Suspect]
     Dosage: 1 CAPSULE, DAILY
     Route: 048

REACTIONS (4)
  - Drug ineffective [None]
  - Incorrect dose administered [None]
  - Product quality issue [None]
  - Product tampering [None]
